FAERS Safety Report 4443992-7 (Version None)
Quarter: 2004Q3

REPORT INFORMATION
  Report Type: 
  Country: None (occurrence: None)
  Receive Date: 20040729
  Receipt Date: 20031113
  Transmission Date: 20050211
  Serious: Yes (Other)
  Sender: FDA-Public Use
  Company Number: US-JNJFOC-20030902186

PATIENT
  Age: 49 Year
  Sex: Male

DRUGS (5)
  1. RISPERDAL [Suspect]
     Indication: PSYCHOTIC DISORDER
     Dosage: 0.5 MG , 1 IN 1 DAY, ORAL
     Route: 048
     Dates: start: 20011003, end: 20011031
  2. ... [Concomitant]
  3. NEURONTIN (GABAPENTIN) TABLETS [Concomitant]
  4. EFFEXOR (VENLFAXINE HYDROCHLORIDE) TABLETS [Concomitant]
  5. WELLBUTRIN (BUPROPION HYDROCHLORIDE) TABLETS [Concomitant]

REACTIONS (1)
  - DIABETES MELLITUS NON-INSULIN-DEPENDENT [None]
